FAERS Safety Report 6242507-0 (Version None)
Quarter: 2009Q2

REPORT INFORMATION
  Report Type: 
  Country: None (occurrence: None)
  Receive Date: 20090622
  Receipt Date: 20090622
  Transmission Date: 20091009
  Serious: Yes (Life-Threatening, Other)
  Sender: FDA-Public Use
  Company Number: None

PATIENT
  Age: 51 Year
  Sex: Female
  Weight: 90.7194 kg

DRUGS (1)
  1. TRAZODONE HCL [Suspect]
     Indication: INSOMNIA
     Dosage: 50 MG DAILY PO
     Route: 048
     Dates: start: 20090523, end: 20090613

REACTIONS (9)
  - BRADYPHRENIA [None]
  - CONFUSIONAL STATE [None]
  - DIZZINESS [None]
  - FATIGUE [None]
  - MALAISE [None]
  - MENTAL DISORDER [None]
  - OVERDOSE [None]
  - PRODUCT QUALITY ISSUE [None]
  - SOMNOLENCE [None]
